FAERS Safety Report 4850244-X (Version None)
Quarter: 2005Q4

REPORT INFORMATION
  Report Type: 
  Country: None (occurrence: None)
  Receive Date: 20051123
  Receipt Date: 20041122
  Transmission Date: 20060501
  Serious: Yes (Hospitalization, Other)
  Sender: FDA-Public Use
  Company Number: 2004070143

PATIENT
  Age: 66 Year
  Sex: Female
  Weight: 69.8539 kg

DRUGS (3)
  1. LIPITOR [Suspect]
     Indication: BLOOD CHOLESTEROL INCREASED
     Dosage: 20 MG (20 MG, 1 IN 1 D) ORAL
     Route: 048
     Dates: end: 20030101
  2. EZETIMIBE (EZETIMIBE) [Suspect]
     Indication: ILL-DEFINED DISORDER
  3. ALENDRONATE SODIUM [Concomitant]

REACTIONS (6)
  - ASTHENIA [None]
  - GASTRIC DISORDER [None]
  - GASTRITIS [None]
  - HEADACHE [None]
  - SENSATION OF HEAVINESS [None]
  - STOMACH DISCOMFORT [None]
